FAERS Safety Report 8690408 (Version 3)
Quarter: 2013Q1

REPORT INFORMATION
  Report Type: Spontaneous
  Country: US (occurrence: US)
  Receive Date: 20120727
  Receipt Date: 20130205
  Transmission Date: 20140127
  Serious: No
  Sender: FDA-Public Use
  Company Number: US-ASTRAZENECA-2011SE75359

PATIENT
  Age: 46 Year
  Sex: Female
  Weight: 68 kg

DRUGS (3)
  1. SEROQUEL [Suspect]
     Indication: BIPOLAR DISORDER
     Route: 048
     Dates: start: 2008
  2. SEROQUEL [Suspect]
     Indication: BIPOLAR DISORDER
     Route: 048
     Dates: start: 201206
  3. CELEXA [Concomitant]

REACTIONS (6)
  - Withdrawal syndrome [Unknown]
  - Chills [Unknown]
  - Hyperhidrosis [Unknown]
  - Feeling abnormal [Not Recovered/Not Resolved]
  - Drug ineffective [Unknown]
  - Drug dose omission [Unknown]
